FAERS Safety Report 9571200 (Version 4)
Quarter: 2014Q1

REPORT INFORMATION
  Report Type: Report from Study
  Country: US (occurrence: US)
  Receive Date: 20131001
  Receipt Date: 20140213
  Transmission Date: 20141002
  Serious: Yes (Death, Life-Threatening, Hospitalization)
  Sender: FDA-Public Use
  Company Number: PHEH2013US020402

PATIENT
  Sex: Male

DRUGS (7)
  1. MYFORTIC [Suspect]
     Indication: RENAL AND PANCREAS TRANSPLANT
     Dosage: 360 MG, BID
     Route: 048
     Dates: start: 20070105
  2. LANTUS [Concomitant]
     Dosage: UNK UKN, UNK
     Dates: start: 20110301
  3. HUMALOG [Concomitant]
     Dosage: UNK UKN, UNK
     Dates: start: 20110301
  4. LISINOPRIL [Concomitant]
     Dosage: UNK UKN, UNK
  5. KCL [Concomitant]
     Dosage: UNK UKN, UNK
  6. PREDNISONE [Concomitant]
     Dosage: UNK UKN, UNK
  7. PROGRAF [Concomitant]
     Dosage: UNK UKN, UNK

REACTIONS (12)
  - Pneumonia aspiration [Fatal]
  - Pneumonia [Fatal]
  - Body temperature increased [Fatal]
  - Brain death [Unknown]
  - Coma [Unknown]
  - Brain injury [Unknown]
  - Unresponsive to stimuli [Unknown]
  - Micturition disorder [Unknown]
  - Renal injury [Unknown]
  - Complications of transplanted pancreas [Unknown]
  - Vomiting [Unknown]
  - Asthenia [Unknown]
